FAERS Safety Report 7548340-1 (Version None)
Quarter: 2011Q2

REPORT INFORMATION
  Report Type: 
  Country: None (occurrence: None)
  Receive Date: 20110615
  Receipt Date: 20110610
  Transmission Date: 20111010
  Serious: No
  Sender: FDA-Public Use
  Company Number: US-PFIZER INC-2011127715

PATIENT
  Age: 75 Year
  Sex: Male
  Weight: 79 kg

DRUGS (3)
  1. ACETYLSALICYLIC ACID [Concomitant]
     Dosage: UNK, DAILY
  2. MULTI-VITAMINS [Concomitant]
     Dosage: UNK, DAILY
  3. LIPITOR [Suspect]
     Indication: BLOOD CHOLESTEROL INCREASED
     Dosage: 40 MG, 1X/DAY
     Route: 048
     Dates: start: 20040101, end: 20110604

REACTIONS (8)
  - PAIN [None]
  - ASTHENIA [None]
  - GAIT DISTURBANCE [None]
  - RASH [None]
  - PYREXIA [None]
  - FATIGUE [None]
  - MYALGIA [None]
  - SWELLING [None]
